FAERS Safety Report 6745109-2 (Version None)
Quarter: 2010Q2

REPORT INFORMATION
  Report Type: 
  Country: None (occurrence: None)
  Receive Date: 20100527
  Receipt Date: 20100517
  Transmission Date: 20101027
  Serious: Yes (Hospitalization)
  Sender: FDA-Public Use
  Company Number: AU-WATSON-2010-06800

PATIENT
  Age: 21 Year
  Sex: Female

DRUGS (7)
  1. MIRTAZAPINE [Suspect]
     Indication: OVERDOSE
     Dosage: 315 MG SINGLE
  2. RISPERIDONE [Suspect]
     Indication: SCHIZOPHRENIA
     Dosage: 120 MG
  3. FLUOXETINE [Suspect]
     Indication: OVERDOSE
     Dosage: 1.1 G SINGLE
  4. TRAMADOL HCL [Suspect]
     Indication: OVERDOSE
  5. QUETIAPINE [Suspect]
     Indication: OVERDOSE
     Dosage: 15 G SINGLE
  6. ESCITALOPRAM [Suspect]
     Indication: OVERDOSE
     Dosage: 560 MG SINGLE
  7. LITHIUM [Suspect]
     Indication: OVERDOSE
     Dosage: 13 G SINGLE

REACTIONS (2)
  - MULTIPLE DRUG OVERDOSE [None]
  - SEROTONIN SYNDROME [None]
